FAERS Safety Report 12989545 (Version 1)
Quarter: 2016Q4

REPORT INFORMATION
  Report Type: Spontaneous
  Country: US (occurrence: US)
  Receive Date: 20161201
  Receipt Date: 20161201
  Transmission Date: 20170207
  Serious: Yes (Other)
  Sender: FDA-Public Use
  Company Number: US-CLINIGEN GROUP PLC/ CLINIGEN HEALTHCARE LTD-E2B_00001517

PATIENT

DRUGS (7)
  1. ETHYOL [Suspect]
     Active Substance: AMIFOSTINE
     Indication: ADVERSE DRUG REACTION
     Dosage: 1500 MG QD 1ST CYCLE(S)
     Route: 042
     Dates: start: 1900, end: 1900
  2. NEUPOGEN [Concomitant]
     Active Substance: FILGRASTIM
     Route: 065
  3. OPIATE AND OPIOID ANALGESIC (NOS) [Concomitant]
     Route: 065
  4. ANTIEMETIC (NOS) [Concomitant]
     Route: 065
  5. CISPLATIN. [Concomitant]
     Active Substance: CISPLATIN
     Dosage: 107 MG 1ST CYCLE(S)
     Route: 042
  6. 5-FU [Suspect]
     Active Substance: FLUOROURACIL
     Indication: LARYNGEAL CANCER
     Dosage: UNKNOWN 1ST CYCLE(S)
     Route: 042
     Dates: start: 1900, end: 1900
  7. DECADRON [Concomitant]
     Active Substance: DEXAMETHASONE
     Dosage: 10 MG 2 DOSE(S)
     Route: 048

REACTIONS (4)
  - Nausea [Unknown]
  - Mucosal inflammation [Unknown]
  - Vomiting [Unknown]
  - Bone marrow failure [Unknown]
